FAERS Safety Report 20300899 (Version 1)
Quarter: 2022Q1

REPORT INFORMATION
  Report Type: Spontaneous
  Country: JP (occurrence: JP)
  Receive Date: 20220105
  Receipt Date: 20220105
  Transmission Date: 20220424
  Serious: Yes (Death, Hospitalization, Other)
  Sender: FDA-Public Use
  Company Number: JP-PFIZER INC-202101597478

PATIENT
  Age: 78 Year
  Sex: Male
  Weight: 71.4 kg

DRUGS (10)
  1. INLYTA [Suspect]
     Active Substance: AXITINIB
     Dosage: 5 MG, 2X/DAY
     Dates: start: 20200319, end: 20200416
  2. INLYTA [Suspect]
     Active Substance: AXITINIB
     Dosage: 4 MG, 2X/DAY
     Dates: start: 20200417, end: 20200430
  3. INLYTA [Suspect]
     Active Substance: AXITINIB
     Dosage: 3 MG, 2X/DAY
     Dates: start: 20200501, end: 20210621
  4. BAVENCIO [Suspect]
     Active Substance: AVELUMAB
     Dosage: 700 MG, 1X/DAY
     Dates: start: 20200319, end: 20200319
  5. BAVENCIO [Suspect]
     Active Substance: AVELUMAB
     Dosage: 600 MG, 1X/DAY
     Dates: start: 20200402, end: 20200402
  6. BAVENCIO [Suspect]
     Active Substance: AVELUMAB
     Dosage: 600 MG, 1X/DAY
     Dates: start: 20200417, end: 20200417
  7. BAVENCIO [Suspect]
     Active Substance: AVELUMAB
     Dosage: 600 MG, 1X/DAY
     Dates: start: 20200519, end: 20200519
  8. BAVENCIO [Suspect]
     Active Substance: AVELUMAB
     Dosage: 600 MG, 1X/DAY
     Dates: start: 20200602, end: 20200602
  9. BAVENCIO [Suspect]
     Active Substance: AVELUMAB
     Dosage: 600 MG, 1X/DAY
     Dates: start: 20200616, end: 20200616
  10. BAVENCIO [Suspect]
     Active Substance: AVELUMAB
     Dosage: 600 MG, 1X/DAY
     Dates: start: 20200807, end: 20200807

REACTIONS (6)
  - Neoplasm progression [Fatal]
  - Cerebral haemorrhage [Recovered/Resolved with Sequelae]
  - Pyrexia [Recovered/Resolved]
  - Hypertension [Recovered/Resolved]
  - Dysphonia [Recovered/Resolved]
  - Chills [Unknown]

NARRATIVE: CASE EVENT DATE: 20200417
